FAERS Safety Report 9805982 (Version 3)
Quarter: 2014Q1

REPORT INFORMATION
  Report Type: Report from Study
  Country: US (occurrence: US)
  Receive Date: 20140109
  Receipt Date: 20140328
  Transmission Date: 20141002
  Serious: Yes (Death, Life-Threatening, Hospitalization)
  Sender: FDA-Public Use
  Company Number: PHEH2014US000730

PATIENT
  Age: 50 Year
  Sex: Female

DRUGS (10)
  1. TASIGNA [Suspect]
     Indication: ACUTE MYELOID LEUKAEMIA
     Dosage: 300 MG, BID
     Route: 048
     Dates: start: 20131124
  2. TASIGNA [Suspect]
     Indication: OFF LABEL USE
  3. ACYCLOVIR [Concomitant]
  4. ZYRTEC [Concomitant]
  5. CEFEPIME [Concomitant]
  6. VANCOMYCIN [Concomitant]
  7. OMEPRAZOLE [Concomitant]
  8. AZTREONAM [Concomitant]
  9. LEVOTHYROXINE [Concomitant]
  10. CASPOFUNGIN [Concomitant]

REACTIONS (5)
  - Cerebral haemorrhage [Fatal]
  - Mental status changes [Fatal]
  - Loss of consciousness [Fatal]
  - Tachycardia [Fatal]
  - Platelet count decreased [Fatal]
